FAERS Safety Report 21562407 (Version 2)
Quarter: 2022Q4

REPORT INFORMATION
  Report Type: Spontaneous
  Country: NO (occurrence: NO)
  Receive Date: 20221107
  Receipt Date: 20221118
  Transmission Date: 20230112
  Serious: Yes (Other)
  Sender: FDA-Public Use
  Company Number: NO-TAKEDA-2022TUS082001

PATIENT
  Sex: Male

DRUGS (1)
  1. PANTOPRAZOLE [Suspect]
     Active Substance: PANTOPRAZOLE
     Dosage: 20 MILLIGRAM, QID
     Route: 065

REACTIONS (4)
  - Haematemesis [Unknown]
  - Feeling hot [Unknown]
  - Eye discharge [Unknown]
  - Increased upper airway secretion [Unknown]
